FAERS Safety Report 19837040 (Version 1)
Quarter: 2021Q3

REPORT INFORMATION
  Report Type: Spontaneous
  Country: RS (occurrence: RS)
  Receive Date: 20210916
  Receipt Date: 20210916
  Transmission Date: 20211014
  Serious: Yes (Other)
  Sender: FDA-Public Use
  Company Number: RS-TEVA-2021-RS-1953105

PATIENT
  Age: 74 Year
  Sex: Female

DRUGS (5)
  1. ATACOR [Suspect]
     Active Substance: ATORVASTATIN CALCIUM
     Indication: DYSLIPIDAEMIA
     Dosage: 20 MILLIGRAM DAILY; IN THE EVENING
     Route: 048
     Dates: start: 20210719, end: 20210804
  2. DUROFILIN [Concomitant]
  3. BERODUAL [Concomitant]
     Active Substance: FENOTEROL HYDROBROMIDE\IPRATROPIUM BROMIDE
  4. HEMOPRES [Concomitant]
  5. AMPRIL [Concomitant]
     Active Substance: RAMIPRIL

REACTIONS (4)
  - Dizziness [Recovered/Resolved]
  - Blindness [Recovered/Resolved]
  - Tinnitus [Recovered/Resolved]
  - Amnesia [Recovered/Resolved]

NARRATIVE: CASE EVENT DATE: 2021
